FAERS Safety Report 4510527-X (Version None)
Quarter: 2004Q4

REPORT INFORMATION
  Report Type: 
  Country: None (occurrence: None)
  Receive Date: 20041122
  Receipt Date: 20041117
  Transmission Date: 20050328
  Serious: Yes (Other)
  Sender: FDA-Public Use
  Company Number: 2004UW23116

PATIENT

DRUGS (2)
  1. SEROQUEL [Suspect]
     Dosage: 500 MG PO
     Route: 048
  2. FERROUS SULFATE TAB [Suspect]
     Dosage: 500 MG

REACTIONS (3)
  - CONFUSIONAL STATE [None]
  - MEDICATION ERROR [None]
  - PSYCHIATRIC SYMPTOM [None]
